FAERS Safety Report 6139861-7 (Version None)
Quarter: 2009Q2

REPORT INFORMATION
  Report Type: 
  Country: None (occurrence: None)
  Receive Date: 20090401
  Receipt Date: 20090324
  Transmission Date: 20091009
  Serious: Yes (Other)
  Sender: FDA-Public Use
  Company Number: CA-ASTRAZENECA-2009UW07603

PATIENT
  Age: 49 Year
  Sex: Male

DRUGS (6)
  1. CRESTOR [Suspect]
     Route: 048
     Dates: start: 20080101
  2. CRESTOR [Suspect]
     Route: 048
  3. CRESTOR [Suspect]
     Route: 048
  4. SIMVASTATIN [Concomitant]
  5. ASPIRIN [Concomitant]
  6. CELEBREX [Concomitant]
     Indication: BACK PAIN

REACTIONS (1)
  - CHEST PAIN [None]
